FAERS Safety Report 5031618-3 (Version None)
Quarter: 2006Q2

REPORT INFORMATION
  Report Type: 
  Country: None (occurrence: None)
  Receive Date: 20060505
  Receipt Date: 20050523
  Transmission Date: 20061013
  Serious: Yes (Other)
  Sender: FDA-Public Use
  Company Number: PHEH2005US05895

PATIENT
  Age: 1 Year
  Sex: Female

DRUGS (1)
  1. DIOVAN HCT (VALSARTAN, HYDROCHLOROTHIAZIDE) 80/12.5 MG [Suspect]
     Indication: HYPERTENSION
     Dosage: 1 DF QD ORAL
     Route: 048
     Dates: start: 20010101

REACTIONS (2)
  - FEELING ABNORMAL [None]
  - HYPERTENSION [None]
